FAERS Safety Report 10368075 (Version 1)
Quarter: 2014Q3

REPORT INFORMATION
  Report Type: Spontaneous
  Country: DE (occurrence: DE)
  Receive Date: 20140807
  Receipt Date: 20140807
  Transmission Date: 20150326
  Serious: Yes (Hospitalization)
  Sender: FDA-Public Use
  Company Number: DE-OTSUKA-EU-2014-10307

PATIENT
  Age: 41 Year
  Sex: Male

DRUGS (5)
  1. APYDAN [Concomitant]
     Indication: EPILEPSY
     Dosage: 3000 MG MILLIGRAM(S), UNK
     Route: 048
  2. SOLIAN [Concomitant]
     Active Substance: AMISULPRIDE
     Indication: DELUSION
     Dosage: 700 MG MILLIGRAM(S), UNK
     Route: 048
  3. GABAPENTIN. [Concomitant]
     Active Substance: GABAPENTIN
     Indication: EPILEPSY
     Dosage: 2000 MG MILLIGRAM(S), UNK
     Route: 048
  4. VIMPAT [Concomitant]
     Active Substance: LACOSAMIDE
     Indication: EPILEPSY
     Dosage: 400 MG MILLIGRAM(S), UNK
     Route: 048
  5. ABILIFY MAINTENA [Suspect]
     Active Substance: ARIPIPRAZOLE
     Indication: DELUSION
     Dosage: 400 MG MILLIGRAM(S), UNKNOWN
     Route: 030
     Dates: start: 20140707

REACTIONS (3)
  - Epilepsy [Not Recovered/Not Resolved]
  - Off label use [Unknown]
  - Condition aggravated [Not Recovered/Not Resolved]

NARRATIVE: CASE EVENT DATE: 20140716
